FAERS Safety Report 5169184-4 (Version None)
Quarter: 2006Q4

REPORT INFORMATION
  Report Type: 
  Country: None (occurrence: None)
  Receive Date: 20061211
  Receipt Date: 20061205
  Transmission Date: 20070319
  Serious: Yes (Other)
  Sender: FDA-Public Use
  Company Number: 2006UW27105

PATIENT
  Age: 13 Year
  Sex: Male
  Weight: 48.5 kg

DRUGS (2)
  1. SYMBICORT [Suspect]
     Indication: BRONCHITIS
     Dosage: 12/400 MCG PRN IH
     Route: 055
     Dates: start: 20050101
  2. SYMBICORT [Suspect]
     Dosage: 12/400 MCG (INHALED 15 TO 20 DOSES)
     Route: 055
     Dates: start: 20061128, end: 20061128

REACTIONS (3)
  - INTENTIONAL OVERDOSE [None]
  - NERVOUSNESS [None]
  - SUICIDE ATTEMPT [None]
